FAERS Safety Report 8822253 (Version 2)
Quarter: 2012Q4

REPORT INFORMATION
  Report Type: 
  Country: PR (occurrence: PR)
  Receive Date: 20121003
  Receipt Date: 20121113
  Transmission Date: 20130627
  Serious: Yes (Death, Hospitalization)
  Sender: FDA-Public Use
  Company Number: PR-BAYER-2012-100943

PATIENT
  Age: 56 Year
  Sex: Male

DRUGS (1)
  1. NEXAVAR [Suspect]
     Indication: PRIMARY MALIGNANT NEOPLASM OF LIVER
     Dosage: 400 mg, BID
     Route: 048
     Dates: start: 201110

REACTIONS (2)
  - Malaise [None]
  - Death [Fatal]
